FAERS Safety Report 19583086 (Version 1)
Quarter: 2021Q3

REPORT INFORMATION
  Report Type: Spontaneous
  Country: US (occurrence: US)
  Receive Date: 20210720
  Receipt Date: 20210720
  Transmission Date: 20211014
  Serious: Yes (Other)
  Sender: FDA-Public Use
  Company Number: NVSC2021US155608

PATIENT
  Sex: Male

DRUGS (6)
  1. DOCETAXEL. [Suspect]
     Active Substance: DOCETAXEL
     Indication: PROSTATE CANCER METASTATIC
     Dosage: 6 UNK
     Route: 065
     Dates: start: 20200508
  2. OLAPARIB. [Concomitant]
     Active Substance: OLAPARIB
     Indication: METASTATIC NEOPLASM
     Route: 065
  3. ABIRATERONE. [Concomitant]
     Active Substance: ABIRATERONE ACETATE
     Indication: METASTATIC NEOPLASM
     Route: 065
  4. ADT [Concomitant]
     Active Substance: AMITRIPTYLINE HYDROCHLORIDE
     Indication: METASTATIC NEOPLASM
     Route: 065
  5. PROVENGE [Concomitant]
     Active Substance: SIPULEUCEL-T
     Indication: METASTATIC NEOPLASM
     Route: 065
  6. CABAZITAXEL [Concomitant]
     Active Substance: CABAZITAXEL
     Indication: METASTATIC NEOPLASM
     Route: 065

REACTIONS (2)
  - Prostate cancer metastatic [Unknown]
  - Malignant neoplasm progression [Unknown]
